FAERS Safety Report 5464818-9 (Version None)
Quarter: 2007Q3

REPORT INFORMATION
  Report Type: 
  Country: None (occurrence: None)
  Receive Date: 20070820
  Receipt Date: 20070717
  Transmission Date: 20080115
  Serious: No
  Sender: FDA-Public Use
  Company Number: TPA2007A01335

PATIENT
  Age: 60 Year
  Sex: Female
  Weight: 58.0604 kg

DRUGS (6)
  1. ROZEREM [Suspect]
     Indication: INSOMNIA
     Dosage: 8 MG, HS, PER ORAL
     Route: 048
     Dates: start: 20070529
  2. CALCIUM (CALCIUM) [Concomitant]
  3. VITAMIN E [Concomitant]
  4. ASCORBIC ACID [Concomitant]
  5. FISH OIL (FISH OIL) [Concomitant]
  6. MULTIVITAMIN (ERGOCALCIFEROL, ASORBIC ACID, FOLIC ACID, THIAMINE HYDRO [Concomitant]

REACTIONS (3)
  - DRUG INEFFECTIVE [None]
  - INITIAL INSOMNIA [None]
  - INSOMNIA [None]
